FAERS Safety Report 6855039-3 (Version None)
Quarter: 2010Q3

REPORT INFORMATION
  Report Type: 
  Country: None (occurrence: None)
  Receive Date: 20100717
  Receipt Date: 20080414
  Transmission Date: 20110219
  Serious: Yes (Other)
  Sender: FDA-Public Use
  Company Number: US-PFIZER INC-2007104526

PATIENT
  Sex: Female
  Weight: 69.9 kg

DRUGS (6)
  1. CHANTIX [Suspect]
     Indication: SMOKING CESSATION THERAPY
     Route: 048
     Dates: start: 20070807, end: 20071110
  2. LIPITOR [Concomitant]
  3. PREMARIN [Concomitant]
  4. BUPROPION [Concomitant]
  5. FOSAMAX [Concomitant]
  6. CELEBREX [Concomitant]

REACTIONS (6)
  - BONE DENSITY DECREASED [None]
  - DEVICE FAILURE [None]
  - GINGIVAL PAIN [None]
  - GINGIVITIS [None]
  - SURGERY [None]
  - TOOTH LOSS [None]
